FAERS Safety Report 4434441-3 (Version None)
Quarter: 2004Q3

REPORT INFORMATION
  Report Type: 
  Country: None (occurrence: None)
  Receive Date: 20040726
  Receipt Date: 20040505
  Transmission Date: 20050211
  Serious: Yes (Other)
  Sender: FDA-Public Use
  Company Number: USA040259195

PATIENT
  Age: 80 Year
  Sex: Female

DRUGS (6)
  1. EVISTA [Suspect]
  2. FORTEO [Suspect]
     Dates: start: 20030701
  3. FOSAMAX [Concomitant]
  4. ACTONEL [Concomitant]
  5. MIACALCIN [Concomitant]
  6. PAMIDRONATE DISODIUM [Concomitant]

REACTIONS (3)
  - LUMBAR VERTEBRAL FRACTURE [None]
  - NAUSEA [None]
  - OEDEMA PERIPHERAL [None]
